FAERS Safety Report 5327269-3 (Version None)
Quarter: 2007Q2

REPORT INFORMATION
  Report Type: 
  Country: None (occurrence: None)
  Receive Date: 20070517
  Receipt Date: 20070514
  Transmission Date: 20071010
  Serious: Yes (Hospitalization)
  Sender: FDA-Public Use
  Company Number: FR-BRISTOL-MYERS SQUIBB COMPANY-13780077

PATIENT
  Age: 80 Year
  Sex: Female
  Weight: 83 kg

DRUGS (6)
  1. COAPROVEL TABS [Suspect]
     Indication: ESSENTIAL HYPERTENSION
     Route: 048
     Dates: start: 20070403, end: 20070410
  2. ANAFRANIL [Suspect]
     Dates: end: 20070410
  3. HALDOL [Suspect]
     Dates: end: 20070412
  4. MYOLASTAN [Suspect]
  5. TRANXENE [Suspect]
     Dates: end: 20070412
  6. ACETAMINOPHEN AND TRAMADOL HCL [Suspect]
     Dates: start: 20070315, end: 20070410

REACTIONS (3)
  - FALL [None]
  - HYPOTHERMIA [None]
  - ORTHOSTATIC HYPOTENSION [None]
